FAERS Safety Report 4999480-2 (Version None)
Quarter: 2006Q2

REPORT INFORMATION
  Report Type: 
  Country: None (occurrence: None)
  Receive Date: 20060509
  Receipt Date: 20060509
  Transmission Date: 20061013
  Serious: Yes (Hospitalization)
  Sender: FDA-Public Use
  Company Number: None

PATIENT
  Age: 58 Year
  Sex: Female
  Weight: 51.2 kg

DRUGS (9)
  1. COUMADIN [Suspect]
     Indication: ATRIAL FIBRILLATION
     Dosage: 5 MG PO ONCE  ON 1 MG PO 5 X WEEK
     Route: 048
  2. ASPIRIN [Concomitant]
  3. SPIRONOLACTONE [Concomitant]
  4. BUMETANIDE [Concomitant]
  5. ESOMEPRAZOLE [Concomitant]
  6. LEVOTHYROXINE SODIUM [Concomitant]
  7. ESCITALOPRAM OXALATE [Concomitant]
  8. MAGNESIUM OXIDE [Concomitant]
  9. ESTROGENS SOL/INJ [Concomitant]

REACTIONS (8)
  - ACCIDENTAL EXPOSURE [None]
  - ANXIETY [None]
  - DIARRHOEA [None]
  - FATIGUE [None]
  - FREQUENT BOWEL MOVEMENTS [None]
  - INCORRECT DOSE ADMINISTERED [None]
  - INSOMNIA [None]
  - INTERNATIONAL NORMALISED RATIO INCREASED [None]
